FAERS Safety Report 4989763-4 (Version None)
Quarter: 2006Q2

REPORT INFORMATION
  Report Type: 
  Country: None (occurrence: None)
  Receive Date: 20060501
  Receipt Date: 20060421
  Transmission Date: 20061013
  Serious: Yes (Other)
  Sender: FDA-Public Use
  Company Number: 430131K05USA

PATIENT
  Age: 39 Year
  Sex: Male

DRUGS (1)
  1. NOVANTRONE [Suspect]
     Indication: MULTIPLE SCLEROSIS
     Dates: start: 20041217, end: 20050701

REACTIONS (2)
  - CARDIAC FUNCTION TEST ABNORMAL [None]
  - MULTIPLE GATED ACQUISITION SCAN ABNORMAL [None]
